FAERS Safety Report 14015796 (Version 41)
Quarter: 2020Q1

REPORT INFORMATION
  Report Type: Report from Study
  Country: US (occurrence: US)
  Receive Date: 20170927
  Receipt Date: 20200318
  Transmission Date: 20200409
  Serious: Yes (Death, Life-Threatening, Hospitalization)
  Sender: FDA-Public Use
  Company Number: US-ACTELION-A-US2017-149851

PATIENT
  Age: 41 Year
  Sex: Female
  Weight: 58.96 kg

DRUGS (10)
  1. VELETRI [Suspect]
     Active Substance: EPOPROSTENOL
     Dosage: 85 NG/KG, PER MIN
     Route: 042
  2. VELETRI [Suspect]
     Active Substance: EPOPROSTENOL
     Dosage: 91 NG/KG, PER MIN
     Route: 042
  3. VELETRI [Suspect]
     Active Substance: EPOPROSTENOL
     Dosage: 50 NG/KG, PER MIN
     Route: 042
  4. VELETRI [Suspect]
     Active Substance: EPOPROSTENOL
     Dosage: 103 NG/KG, PER MIN
     Route: 042
  5. VELETRI [Suspect]
     Active Substance: EPOPROSTENOL
     Dosage: 72 NG/KG, PER MIN
     Route: 042
  6. VELETRI [Suspect]
     Active Substance: EPOPROSTENOL
     Dosage: 100 NG/KG, PER MIN
     Route: 042
  7. COUMADIN [Concomitant]
     Active Substance: WARFARIN SODIUM
  8. LETAIRIS [Concomitant]
     Active Substance: AMBRISENTAN
  9. VELETRI [Suspect]
     Active Substance: EPOPROSTENOL
     Indication: PULMONARY HYPERTENSION
     Dosage: 99 NG/KG/MIN
     Route: 042
  10. VELETRI [Suspect]
     Active Substance: EPOPROSTENOL
     Dosage: 82 NG/KG, PER MIN
     Route: 042

REACTIONS (48)
  - Bronchitis [Recovered/Resolved]
  - Pulmonary arterial hypertension [Recovered/Resolved]
  - Complication associated with device [Unknown]
  - Confusional state [Unknown]
  - Post-traumatic stress disorder [Recovered/Resolved]
  - Condition aggravated [Fatal]
  - Haemoptysis [Unknown]
  - Fluid overload [Unknown]
  - Toxicity to various agents [Unknown]
  - Eczema [Unknown]
  - Atrial fibrillation [Unknown]
  - Swelling [Recovered/Resolved]
  - Peripheral swelling [Unknown]
  - Hypotension [Unknown]
  - Palpitations [Recovered/Resolved]
  - Erythema [Unknown]
  - Cardiac failure acute [Unknown]
  - Anxiety [Unknown]
  - Device malfunction [Unknown]
  - Device breakage [Unknown]
  - Feeling abnormal [Unknown]
  - Haematemesis [Unknown]
  - Fluid retention [Unknown]
  - Heart rate increased [Unknown]
  - Respiratory disorder [Unknown]
  - Hospitalisation [Unknown]
  - Device occlusion [Recovered/Resolved]
  - Device issue [Unknown]
  - Catheter management [Unknown]
  - Sepsis [Unknown]
  - Pulmonary arterial pressure increased [Unknown]
  - Influenza [Fatal]
  - Hyperhidrosis [Unknown]
  - Respiratory tract congestion [Unknown]
  - Device alarm issue [Recovered/Resolved]
  - Suicide attempt [Unknown]
  - Product dose omission [Unknown]
  - Asthenia [Unknown]
  - Dyspnoea [Unknown]
  - Chest pain [Unknown]
  - Acute respiratory failure [Unknown]
  - Blood sodium increased [Recovered/Resolved]
  - Tachycardia [Unknown]
  - Delirium [Unknown]
  - Hypervolaemia [Recovered/Resolved]
  - Hypersensitivity [Unknown]
  - Emergency care [Unknown]
  - Device related thrombosis [Unknown]

NARRATIVE: CASE EVENT DATE: 20190212
